FAERS Safety Report 8502078 (Version 2)
Quarter: 2013Q4

REPORT INFORMATION
  Report Type: Spontaneous
  Country: US (occurrence: US)
  Receive Date: 20120410
  Receipt Date: 20131022
  Transmission Date: 20140711
  Serious: Yes (Hospitalization)
  Sender: FDA-Public Use
  Company Number: US-PFIZER INC-2012087122

PATIENT
  Age: 85 Year
  Sex: Female

DRUGS (1)
  1. ATENOLOL [Suspect]
     Dosage: UNK
     Route: 048

REACTIONS (2)
  - Fall [Unknown]
  - Facial bones fracture [Unknown]
